FAERS Safety Report 4296408-8 (Version None)
Quarter: 2004Q1

REPORT INFORMATION
  Report Type: 
  Country: None (occurrence: None)
  Receive Date: 20040212
  Receipt Date: 20040203
  Transmission Date: 20041129
  Serious: Yes (Other)
  Sender: FDA-Public Use
  Company Number: 2004-02-0102

PATIENT
  Age: 29 Year
  Sex: Female

DRUGS (2)
  1. INTERFERON ALFA-2B INJECTABLE (LIKE INTRON A) [Suspect]
     Indication: CHRONIC MYELOID LEUKAEMIA
  2. INTERFERON ALFA [Suspect]
     Indication: CHRONIC MYELOID LEUKAEMIA

REACTIONS (5)
  - BLADDER DISORDER [None]
  - HYPOAESTHESIA [None]
  - INTESTINAL FUNCTIONAL DISORDER [None]
  - MULTIPLE SCLEROSIS [None]
  - OPTIC NEURITIS [None]
